FAERS Safety Report 20786359 (Version 2)
Quarter: 2023Q2

REPORT INFORMATION
  Report Type: Spontaneous
  Country: US (occurrence: None)
  Receive Date: 20220504
  Receipt Date: 20230511
  Transmission Date: 20230722
  Serious: No
  Sender: FDA-Public Use
  Company Number: US-ROCHE-2926567

PATIENT
  Sex: Female

DRUGS (1)
  1. OCREVUS [Suspect]
     Active Substance: OCRELIZUMAB
     Indication: Product used for unknown indication
     Dosage: 1ST SPLIT DOSE?DATE OF LAST OCRELIZUMAB: 14/JUL/2021
     Route: 042

REACTIONS (1)
  - Maternal exposure during pregnancy [Unknown]
